FAERS Safety Report 12659650 (Version 2)
Quarter: 2016Q3

REPORT INFORMATION
  Report Type: Spontaneous
  Country: FR (occurrence: FR)
  Receive Date: 20160817
  Receipt Date: 20160819
  Transmission Date: 20161109
  Serious: Yes (Hospitalization)
  Sender: FDA-Public Use
  Company Number: FR-BAUSCH-BL-2016-018594

PATIENT
  Age: 50 Year
  Sex: Male
  Weight: 80 kg

DRUGS (7)
  1. TERBUTALINE [Suspect]
     Active Substance: TERBUTALINE
  2. METHYLPREDNISOLONE. [Concomitant]
     Active Substance: METHYLPREDNISOLONE
     Indication: ASTHMA
     Dosage: WHICH CORRESPONDS TO A DOSAGE REGIMEN OF 1 MG/KG TO BE RENEWED THREE TIMES A DAY
     Route: 042
  3. SALBUTAMOL [Suspect]
     Active Substance: ALBUTEROL
     Indication: ASTHMA
     Route: 042
  4. IPRATROPIUM [Concomitant]
     Active Substance: IPRATROPIUM
  5. TERBUTALINE [Suspect]
     Active Substance: TERBUTALINE
     Indication: ASTHMA
  6. IPRATROPIUM [Concomitant]
     Active Substance: IPRATROPIUM
     Indication: ASTHMA
  7. SALBUTAMOL [Suspect]
     Active Substance: ALBUTEROL
     Route: 042

REACTIONS (1)
  - Metabolic acidosis [Recovered/Resolved]
